FAERS Safety Report 11385686 (Version 2)
Quarter: 2015Q3

REPORT INFORMATION
  Report Type: Spontaneous
  Country: ES (occurrence: ES)
  Receive Date: 20150817
  Receipt Date: 20150821
  Transmission Date: 20151125
  Serious: Yes (Life-Threatening)
  Sender: FDA-Public Use
  Company Number: ES-ROCHE-1621309

PATIENT
  Age: 75 Year
  Sex: Female
  Weight: 66 kg

DRUGS (8)
  1. SINTROM [Concomitant]
     Active Substance: ACENOCOUMAROL
  2. COROPRES [Concomitant]
     Active Substance: CARVEDILOL
     Route: 048
  3. ROACTEMRA [Suspect]
     Active Substance: TOCILIZUMAB
     Indication: RHEUMATOID ARTHRITIS
     Dosage: STRENGTH: 20 MG/ML.
     Route: 042
     Dates: start: 20100618, end: 20150316
  4. OBALIX [Concomitant]
     Route: 048
  5. TORASEMIDA [Concomitant]
     Route: 048
  6. DISTENSAN [Concomitant]
     Route: 048
  7. SIMVASTATINA [Concomitant]
     Active Substance: SIMVASTATIN
     Dosage: AT DINNER
     Route: 048
  8. DIANBEN [Concomitant]
     Active Substance: METFORMIN HYDROCHLORIDE
     Route: 048

REACTIONS (2)
  - Acute leukaemia [Recovering/Resolving]
  - Neutropenia [Unknown]

NARRATIVE: CASE EVENT DATE: 201503
